FAERS Safety Report 4567349-3 (Version None)
Quarter: 2005Q1

REPORT INFORMATION
  Report Type: 
  Country: None (occurrence: None)
  Receive Date: 20050127
  Receipt Date: 20050118
  Transmission Date: 20050727
  Serious: Yes (Hospitalization)
  Sender: FDA-Public Use
  Company Number: 2005RL000005

PATIENT
  Age: 68 Year
  Sex: Female

DRUGS (2)
  1. RYTHMOL [Suspect]
     Indication: ATRIAL FIBRILLATION
     Dosage: 225 MG;BID;PO
     Route: 048
     Dates: start: 20030101
  2. LANOXIN [Concomitant]

REACTIONS (5)
  - ANXIETY [None]
  - ATRIAL FIBRILLATION [None]
  - DYSPNOEA [None]
  - SHOULDER OPERATION [None]
  - VENTRICULAR EXTRASYSTOLES [None]
